FAERS Safety Report 23695836 (Version 1)
Quarter: 2024Q2

REPORT INFORMATION
  Report Type: Spontaneous
  Country: US (occurrence: None)
  Receive Date: 20240402
  Receipt Date: 20240402
  Transmission Date: 20240716
  Serious: Yes (Other)
  Sender: FDA-Public Use
  Company Number: 2024A076030

PATIENT
  Sex: Female

DRUGS (2)
  1. TAGRISSO [Suspect]
     Active Substance: OSIMERTINIB
     Indication: Non-small cell lung cancer
     Route: 048
     Dates: start: 202211
  2. ERLOTINIB [Suspect]
     Active Substance: ERLOTINIB
     Dosage: UNKNOWN
     Dates: start: 202205, end: 202311

REACTIONS (4)
  - Pulmonary oedema [Unknown]
  - Non-small cell lung cancer recurrent [Unknown]
  - COVID-19 [Unknown]
  - Drug ineffective [Unknown]
